FAERS Safety Report 9215729 (Version 2)
Quarter: 2013Q2

REPORT INFORMATION
  Report Type: Spontaneous
  Country: US (occurrence: US)
  Receive Date: 20130408
  Receipt Date: 20130429
  Transmission Date: 20140414
  Serious: Yes (Other)
  Sender: FDA-Public Use
  Company Number: US-BIOGENIDEC-2013BI030608

PATIENT
  Sex: Female
  Weight: 51 kg

DRUGS (12)
  1. AVONEX [Suspect]
     Indication: MULTIPLE SCLEROSIS
     Route: 030
     Dates: start: 20020324
  2. COPAXONE [Concomitant]
  3. DILANTIN [Concomitant]
  4. DILANTIN [Concomitant]
  5. SIMVASTATIN [Concomitant]
  6. CALCIUM+D [Concomitant]
  7. FISH OIL [Concomitant]
  8. OMEGA 3 [Concomitant]
     Route: 048
  9. ZINC [Concomitant]
     Route: 048
  10. VITAMIN B12 [Concomitant]
     Route: 048
  11. ASPIRIN [Concomitant]
     Route: 048
  12. DOXYLAMINE SUCCINATE [Concomitant]

REACTIONS (5)
  - Hysterectomy [Unknown]
  - Grand mal convulsion [Unknown]
  - Multiple sclerosis [Unknown]
  - Central nervous system lesion [Unknown]
  - Cerebral atrophy [Unknown]
